FAERS Safety Report 4862111-6 (Version None)
Quarter: 2005Q4

REPORT INFORMATION
  Report Type: 
  Country: None (occurrence: None)
  Receive Date: 20051130
  Receipt Date: 20041021
  Transmission Date: 20060501
  Serious: Yes (Other)
  Sender: FDA-Public Use
  Company Number: PHEH2003US07961

PATIENT
  Age: 44 Year
  Sex: Female
  Weight: 60.3 kg

DRUGS (2)
  1. LAMISIL [Suspect]
     Indication: NAIL TINEA
     Dosage: 250 MG, QD, ORAL
     Route: 048
     Dates: start: 20030714, end: 20030821
  2. ORTHO-CEPT (DESOGESTREL, ETHINYLESTRADIOL) [Concomitant]

REACTIONS (7)
  - AGEUSIA [None]
  - DYSGEUSIA [None]
  - DYSPNOEA [None]
  - GLOSSODYNIA [None]
  - HYPOAESTHESIA ORAL [None]
  - ORAL PAIN [None]
  - TONGUE OEDEMA [None]
